FAERS Safety Report 18290239 (Version 1)
Quarter: 2020Q3

REPORT INFORMATION
  Report Type: Spontaneous
  Country: US (occurrence: US)
  Receive Date: 20200921
  Receipt Date: 20200921
  Transmission Date: 20201103
  Serious: No
  Sender: FDA-Public Use
  Company Number: US-MYLANLABS-2020M1078541

PATIENT
  Sex: Female

DRUGS (1)
  1. ESTRADIOL TRANSDERMAL SYSTEM [Suspect]
     Active Substance: ESTRADIOL
     Indication: PRODUCT USED FOR UNKNOWN INDICATION
     Dosage: UNK
     Route: 062

REACTIONS (6)
  - Hyperhidrosis [Unknown]
  - Urticaria [Unknown]
  - Product quality issue [Unknown]
  - Pruritus [Unknown]
  - Product adhesion issue [Unknown]
  - Drug ineffective [Unknown]
